FAERS Safety Report 7404978-3 (Version None)
Quarter: 2011Q2

REPORT INFORMATION
  Report Type: 
  Country: None (occurrence: None)
  Receive Date: 20110411
  Receipt Date: 20100728
  Transmission Date: 20111010
  Serious: No
  Sender: FDA-Public Use
  Company Number: US-KINGPHARMUSA00001-K201000941

PATIENT
  Age: 56 Year
  Sex: Female

DRUGS (1)
  1. THROMBIN-JMI [Suspect]
     Indication: OPERATIVE HAEMORRHAGE
     Dosage: UNK, SINGLE
     Dates: start: 20100701, end: 20100701

REACTIONS (1)
  - DRUG INEFFECTIVE [None]
